FAERS Safety Report 4356374-3 (Version None)
Quarter: 2004Q2

REPORT INFORMATION
  Report Type: 
  Country: None (occurrence: None)
  Receive Date: 20040506
  Receipt Date: 20040426
  Transmission Date: 20050107
  Serious: Yes (Hospitalization)
  Sender: FDA-Public Use
  Company Number: US-JNJFOC-20040405492

PATIENT
  Age: 68 Year
  Sex: Male

DRUGS (7)
  1. INFLIXIMAB (INFLIXIMAB, RECOMBINANT) LYOPHILIZED POWDER [Suspect]
     Indication: RHEUMATOID ARTHRITIS
     Dosage: INTRAVENOUS
     Route: 042
     Dates: start: 20011220
  2. METHOTREXATE [Concomitant]
  3. PREDNISONE [Concomitant]
  4. FOLIC ACID [Concomitant]
  5. FOSAMAX [Concomitant]
  6. ACIPHEX [Concomitant]
  7. TYLENOL [Concomitant]

REACTIONS (1)
  - LUNG DISORDER [None]
